FAERS Safety Report 7331376-3 (Version None)
Quarter: 2011Q1

REPORT INFORMATION
  Report Type: 
  Country: None (occurrence: None)
  Receive Date: 20110228
  Receipt Date: 20110228
  Transmission Date: 20110831
  Serious: Yes (Hospitalization)
  Sender: FDA-Public Use
  Company Number: None

PATIENT
  Age: 64 Year
  Sex: Male
  Weight: 104 kg

DRUGS (1)
  1. ALLOPURINOL [Suspect]
     Indication: GOUT
     Dosage: 100 MG EVERY DAY PO
     Route: 048
     Dates: start: 20101117, end: 20101225

REACTIONS (7)
  - PYREXIA [None]
  - SWELLING FACE [None]
  - DIARRHOEA [None]
  - RASH PRURITIC [None]
  - COUGH [None]
  - ERYTHEMA MULTIFORME [None]
  - NASAL CONGESTION [None]
